FAERS Safety Report 25968016 (Version 1)
Quarter: 2025Q4

REPORT INFORMATION
  Report Type: Report from Study
  Country: US (occurrence: US)
  Receive Date: 20251028
  Receipt Date: 20251028
  Transmission Date: 20260118
  Serious: Yes (Hospitalization, Other)
  Sender: JOHNSON AND JOHNSON
  Company Number: US-JNJFOC-20251027167

PATIENT
  Age: 5 Decade
  Sex: Female

DRUGS (7)
  1. SPRAVATO [Suspect]
     Active Substance: ESKETAMINE
     Indication: Depression
     Dosage: ^56 MG, 9 TOTAL DOSES^
     Route: 045
     Dates: start: 20210615, end: 20210730
  2. SPRAVATO [Suspect]
     Active Substance: ESKETAMINE
     Dosage: ^84 MG, 11 TOTAL DOSES^
     Route: 045
     Dates: start: 20210806, end: 20211102
  3. SPRAVATO [Suspect]
     Active Substance: ESKETAMINE
     Dosage: ^56 MG, 24 TOTAL DOSES^
     Route: 045
     Dates: start: 20211210, end: 20220701
  4. SPRAVATO [Suspect]
     Active Substance: ESKETAMINE
     Dosage: ^84 MG, 65 TOTAL DOSES^
     Route: 045
     Dates: start: 20220728, end: 20231222
  5. SPRAVATO [Suspect]
     Active Substance: ESKETAMINE
     Dosage: ^56 MG, 1 TOTAL DOSE^
     Route: 045
     Dates: start: 20231229, end: 20231229
  6. SPRAVATO [Suspect]
     Active Substance: ESKETAMINE
     Dosage: ^84 MG, 56 TOTAL DOSES^
     Route: 045
     Dates: start: 20240227, end: 20250828
  7. SPRAVATO [Suspect]
     Active Substance: ESKETAMINE
     Dosage: ^56 MG, 6 TOTAL DOSES^
     Route: 045
     Dates: start: 20250902, end: 20251014

REACTIONS (1)
  - Ehlers-Danlos syndrome [Unknown]

NARRATIVE: CASE EVENT DATE: 20250101
